FAERS Safety Report 6189781-7 (Version None)
Quarter: 2009Q2

REPORT INFORMATION
  Report Type: 
  Country: None (occurrence: None)
  Receive Date: 20090514
  Receipt Date: 20090508
  Transmission Date: 20091009
  Serious: Yes (Other)
  Sender: FDA-Public Use
  Company Number: US-JNJFOC-20090502533

PATIENT
  Age: 15 Year
  Sex: Female
  Weight: 49.9 kg

DRUGS (2)
  1. CONCERTA [Suspect]
     Indication: ATTENTION DEFICIT/HYPERACTIVITY DISORDER
     Route: 048
  2. ZYRTEC [Concomitant]
     Indication: MULTIPLE ALLERGIES
     Dosage: ONE TEA SPOON AS NEEDED
     Route: 065

REACTIONS (3)
  - DEPRESSION [None]
  - INTENTIONAL SELF-INJURY [None]
  - MOOD SWINGS [None]
